FAERS Safety Report 11993690 (Version 1)
Quarter: 2016Q1

REPORT INFORMATION
  Report Type: Spontaneous
  Country: US (occurrence: US)
  Receive Date: 20160203
  Receipt Date: 20160203
  Transmission Date: 20160526
  Serious: No
  Sender: FDA-Public Use
  Company Number: US-009507513-1601USA009232

PATIENT
  Age: 74 Year
  Sex: Female

DRUGS (2)
  1. XELODA [Concomitant]
     Active Substance: CAPECITABINE
     Dosage: UNK
  2. TEMODAR [Suspect]
     Active Substance: TEMOZOLOMIDE
     Dosage: UNK
     Route: 048
     Dates: start: 201510

REACTIONS (2)
  - Weight increased [Unknown]
  - Increased appetite [Unknown]
